FAERS Safety Report 9699189 (Version 1)
Quarter: 2013Q4

REPORT INFORMATION
  Report Type: Spontaneous
  Country: HU (occurrence: HU)
  Receive Date: 20131120
  Receipt Date: 20131120
  Transmission Date: 20140711
  Serious: Yes (Life-Threatening)
  Sender: FDA-Public Use
  Company Number: HU-MYLANLABS-2013S1025223

PATIENT
  Age: 72 Year
  Sex: Female

DRUGS (9)
  1. MARFARIN [Suspect]
     Indication: ATRIAL FIBRILLATION
     Dates: start: 2009
  2. MARFARIN [Suspect]
     Indication: CONGESTIVE CARDIOMYOPATHY
     Dates: start: 2009
  3. MARFARIN [Suspect]
     Dates: start: 2009
  4. MARFARIN [Suspect]
     Indication: ATRIAL FIBRILLATION
  5. MARFARIN [Suspect]
     Indication: CONGESTIVE CARDIOMYOPATHY
  6. MARFARIN [Suspect]
  7. METHOTREXATE [Suspect]
     Indication: PEMPHIGOID
     Dates: start: 201310
  8. CLOPIDOGREL [Concomitant]
     Indication: ANTIPLATELET THERAPY
     Route: 048
     Dates: start: 2009
  9. ASTRIX [Concomitant]
     Indication: ANTIPLATELET THERAPY
     Dates: start: 2009

REACTIONS (2)
  - International normalised ratio increased [Recovered/Resolved]
  - Thrombocytopenia [Recovered/Resolved]
